FAERS Safety Report 5123053-4 (Version None)
Quarter: 2006Q4

REPORT INFORMATION
  Report Type: 
  Country: None (occurrence: None)
  Receive Date: 20061005
  Receipt Date: 20060919
  Transmission Date: 20070319
  Serious: Yes (Other)
  Sender: FDA-Public Use
  Company Number: 20060189 / FOLLOW-

PATIENT
  Age: 65 Year
  Sex: Male

DRUGS (1)
  1. EPINEPHRINE [Suspect]
     Indication: EYE IRRIGATION
     Dosage: INTRAOCULAR
     Route: 031
     Dates: start: 20060905, end: 20060905

REACTIONS (3)
  - DETACHED DESCEMET'S MEMBRANE [None]
  - EYE OPERATION COMPLICATION [None]
  - INJURY CORNEAL [None]
